FAERS Safety Report 7974100-3 (Version None)
Quarter: 2011Q4

REPORT INFORMATION
  Report Type: 
  Country: None (occurrence: None)
  Receive Date: 20111213
  Receipt Date: 20111205
  Transmission Date: 20120403
  Serious: Yes (Death, Other)
  Sender: FDA-Public Use
  Company Number: PHHY2011US108202

PATIENT
  Age: 73 Year
  Sex: Female

DRUGS (3)
  1. LORAZEPAM [Suspect]
  2. METOPROLOL TARTRATE [Suspect]
     Route: 048
  3. NORTRIPTYLINE HCL [Suspect]

REACTIONS (1)
  - SUICIDAL IDEATION [None]
